FAERS Safety Report 7544576-4 (Version None)
Quarter: 2011Q2

REPORT INFORMATION
  Report Type: 
  Country: None (occurrence: None)
  Receive Date: 20110614
  Receipt Date: 20110602
  Transmission Date: 20111010
  Serious: Yes (Other)
  Sender: FDA-Public Use
  Company Number: US-AMGEN-USASP2011029362

PATIENT
  Age: 49 Year
  Sex: Female
  Weight: 74.376 kg

DRUGS (19)
  1. BISACODYL [Concomitant]
     Indication: PRODUCT USED FOR UNKNOWN INDICATION
     Dosage: 5 MG, AS NEEDED
  2. ROBAXIN [Concomitant]
     Indication: PRODUCT USED FOR UNKNOWN INDICATION
     Dosage: 750 MG TWO CAPSULE, 4X/DAY
  3. LEXAPRO [Concomitant]
     Indication: PRODUCT USED FOR UNKNOWN INDICATION
     Dosage: 20 MG, UNK
     Route: 048
  4. K-DUR [Concomitant]
     Indication: PRODUCT USED FOR UNKNOWN INDICATION
     Dosage: 10 MG
  5. METHADONE HCL [Concomitant]
     Dosage: 40 MG, EVERY 8 HOURS
  6. CYMBALTA [Concomitant]
     Indication: PRODUCT USED FOR UNKNOWN INDICATION
     Dosage: 60 MG, 2X/DAY
  7. ROBAXIN [Concomitant]
     Dosage: 1500 MG (2 TABLETS OF 750 MG), 3X/DAY
     Route: 048
  8. LYRICA [Suspect]
     Indication: FIBROMYALGIA
     Dosage: 200 MG DAILY
     Route: 048
     Dates: start: 20090101
  9. METHADONE HCL [Concomitant]
     Indication: PRODUCT USED FOR UNKNOWN INDICATION
     Dosage: 10 MG FOUR TABLETS EVERY HOUR
  10. NORCO [Concomitant]
     Indication: PRODUCT USED FOR UNKNOWN INDICATION
     Dosage: 7/325 MG, 4X/DAY
  11. KLONOPIN [Concomitant]
     Indication: PRODUCT USED FOR UNKNOWN INDICATION
     Dosage: 2 MG, 4X/DAY
  12. BUPROPION HCL [Concomitant]
     Indication: PRODUCT USED FOR UNKNOWN INDICATION
     Dosage: 5 MG, 2X/DAY
  13. PERCOCET [Concomitant]
     Indication: PRODUCT USED FOR UNKNOWN INDICATION
     Dosage: 15/650 MG (TWO TABLETS 7.5/325MG), EVERY 4-6 HOURS
     Route: 048
  14. PHENAZOPYRIDINE HCL TAB [Concomitant]
     Indication: PRODUCT USED FOR UNKNOWN INDICATION
     Dosage: 200 MG, AS NEEDED
  15. LASIX [Concomitant]
     Indication: PRODUCT USED FOR UNKNOWN INDICATION
     Dosage: 40 MG ONCE A DAY
  16. ASPIRIN [Concomitant]
     Indication: PRODUCT USED FOR UNKNOWN INDICATION
     Dosage: UNK
  17. ENBREL [Suspect]
     Indication: RHEUMATOID ARTHRITIS
     Dosage: 50 MG, WEEKLY
     Dates: start: 20090101, end: 20100101
  18. PREVACID [Concomitant]
     Indication: PRODUCT USED FOR UNKNOWN INDICATION
     Dosage: 325 MG, 4X/DAY
  19. ACIPHEX [Concomitant]
     Indication: PRODUCT USED FOR UNKNOWN INDICATION
     Dosage: 20 MG ONCE A DAY

REACTIONS (7)
  - WEIGHT INCREASED [None]
  - WEIGHT DECREASED [None]
  - SOMNOLENCE [None]
  - RECTOCELE [None]
  - NAUSEA [None]
  - MALAISE [None]
  - VAGINAL FISTULA [None]
